FAERS Safety Report 24307340 (Version 1)
Quarter: 2024Q3

REPORT INFORMATION
  Report Type: Spontaneous
  Country: IT (occurrence: IT)
  Receive Date: 20240911
  Receipt Date: 20240911
  Transmission Date: 20241017
  Serious: Yes (Other)
  Sender: MYLAN
  Company Number: IT-MYLANLABS-2024M1082287

PATIENT
  Sex: Male

DRUGS (4)
  1. GABAPENTIN [Suspect]
     Active Substance: GABAPENTIN
     Indication: Psychomotor hyperactivity
     Dosage: UNK
     Route: 065
  2. AMITRIPTYLINE [Suspect]
     Active Substance: AMITRIPTYLINE
     Indication: Psychomotor hyperactivity
     Dosage: UNK
     Route: 065
  3. CLONAZEPAM [Suspect]
     Active Substance: CLONAZEPAM
     Indication: Psychomotor hyperactivity
     Dosage: UNK
     Route: 065
  4. CLONIDINE [Suspect]
     Active Substance: CLONIDINE
     Indication: Psychomotor hyperactivity
     Dosage: UNK
     Route: 065

REACTIONS (2)
  - Treatment failure [Unknown]
  - Off label use [Unknown]
